FAERS Safety Report 6417165-2 (Version None)
Quarter: 2009Q4

REPORT INFORMATION
  Report Type: 
  Country: None (occurrence: None)
  Receive Date: 20091027
  Receipt Date: 20091027
  Transmission Date: 20100525
  Serious: No
  Sender: FDA-Public Use
  Company Number: None

PATIENT
  Sex: Female
  Weight: 50.8029 kg

DRUGS (2)
  1. COREG [Suspect]
     Indication: HYPERTENSION
     Dosage: ONCE A DAY
  2. COZAAR [Suspect]
     Dosage: ONCE A DAY

REACTIONS (2)
  - HEADACHE [None]
  - NAUSEA [None]
